FAERS Safety Report 10094839 (Version 1)
Quarter: 2014Q2

REPORT INFORMATION
  Report Type: Report from Study
  Country: US (occurrence: US)
  Receive Date: 20140422
  Receipt Date: 20140422
  Transmission Date: 20141212
  Serious: Yes (Hospitalization)
  Sender: FDA-Public Use
  Company Number: US-JNJFOC-20140413903

PATIENT
  Age: 19 Year
  Sex: Female
  Weight: 79.2 kg

DRUGS (6)
  1. REMICADE [Suspect]
     Indication: CROHN^S DISEASE
     Route: 042
     Dates: start: 20090914, end: 20110401
  2. TYLENOL [Concomitant]
     Route: 065
  3. MOTRIN [Concomitant]
     Route: 065
  4. MORPHINE [Concomitant]
     Route: 065
  5. ZOFRAN [Concomitant]
     Route: 065
  6. NUBAIN [Concomitant]
     Route: 065

REACTIONS (1)
  - Crohn^s disease [Recovered/Resolved]
